FAERS Safety Report 23805421 (Version 1)
Quarter: 2024Q2

REPORT INFORMATION
  Report Type: Spontaneous
  Country: US (occurrence: US)
  Receive Date: 20240502
  Receipt Date: 20240502
  Transmission Date: 20240716
  Serious: Yes (Hospitalization, Other)
  Sender: FDA-Public Use
  Company Number: US-REGENERON PHARMACEUTICALS, INC.-2024-066049

PATIENT
  Sex: Female

DRUGS (2)
  1. EYLEA HD [Suspect]
     Active Substance: AFLIBERCEPT
     Indication: Age-related macular degeneration
     Dosage: UNK, EVERY OTHER WEEK, FORMULATION: HD VIAL
     Dates: start: 202401
  2. ELIQUIS [Concomitant]
     Active Substance: APIXABAN
     Indication: Product used for unknown indication

REACTIONS (6)
  - Anaemia [Unknown]
  - Pulmonary thrombosis [Unknown]
  - Muscular weakness [Unknown]
  - Gait disturbance [Unknown]
  - Fall [Unknown]
  - Bedridden [Unknown]

NARRATIVE: CASE EVENT DATE: 20240101
